FAERS Safety Report 10277003 (Version 1)
Quarter: 2014Q3

REPORT INFORMATION
  Report Type: Spontaneous
  Country: AR (occurrence: AR)
  Receive Date: 20140703
  Receipt Date: 20140703
  Transmission Date: 20150326
  Serious: Yes (Other)
  Sender: FDA-Public Use
  Company Number: PHHY2014AR079835

PATIENT

DRUGS (1)
  1. NICOTINELL [Suspect]
     Active Substance: NICOTINE
     Indication: SMOKING CESSATION THERAPY
     Dosage: 1 OR 2 DAILY
     Route: 048
     Dates: start: 2012

REACTIONS (3)
  - Amnesia [Unknown]
  - Depression [Unknown]
  - Anxiety [Unknown]
